FAERS Safety Report 19400875 (Version 3)
Quarter: 2024Q3

REPORT INFORMATION
  Report Type: Spontaneous
  Country: US (occurrence: US)
  Receive Date: 20210610
  Receipt Date: 20240820
  Transmission Date: 20241016
  Serious: No
  Sender: SANOFI AVENTIS
  Company Number: US-SA-SAC20210608000473

PATIENT
  Sex: Female
  Weight: 90.71 kg

DRUGS (5)
  1. CEREZYME [Suspect]
     Active Substance: IMIGLUCERASE
     Indication: Gaucher^s disease
     Dosage: 3600 U, QOW (400UNITS VL 3600 UN)
     Route: 042
     Dates: start: 20040831
  2. CEREZYME [Suspect]
     Active Substance: IMIGLUCERASE
     Dosage: 5200 U, QOW
     Route: 042
     Dates: start: 20040831
  3. SODIUM CHLORIDE [Concomitant]
     Active Substance: SODIUM CHLORIDE
     Dosage: UNK
  4. STERILE WATER [Concomitant]
     Active Substance: WATER
     Dosage: UNK
  5. EPINEPHRINE [Concomitant]
     Active Substance: EPINEPHRINE
     Dosage: UNK

REACTIONS (1)
  - Dizziness [Unknown]
